FAERS Safety Report 25433759 (Version 1)
Quarter: 2025Q2

REPORT INFORMATION
  Report Type: Spontaneous
  Country: DE (occurrence: DE)
  Receive Date: 20250613
  Receipt Date: 20250613
  Transmission Date: 20250716
  Serious: Yes (Other)
  Sender: MYLAN
  Company Number: DE-MYLANLABS-2025M1049790

PATIENT
  Age: 12 Year
  Sex: Male

DRUGS (5)
  1. GABAPENTIN [Suspect]
     Active Substance: GABAPENTIN
     Indication: Kernicterus
  2. BACLOFEN [Suspect]
     Active Substance: BACLOFEN
     Indication: Kernicterus
  3. BACLOFEN [Suspect]
     Active Substance: BACLOFEN
     Indication: Kernicterus
     Dosage: 487 MICROGRAM, QD (THROUGH BALCOFEN PUMP) (INTRAVENTRICULAR)
  4. TETRABENAZINE [Suspect]
     Active Substance: TETRABENAZINE
     Indication: Kernicterus
  5. TRIHEXYPHENIDYL [Suspect]
     Active Substance: TRIHEXYPHENIDYL
     Indication: Kernicterus

REACTIONS (4)
  - Drug ineffective for unapproved indication [Unknown]
  - Off label use [Unknown]
  - Nausea [Unknown]
  - Vomiting [Unknown]
